FAERS Safety Report 4368559-0 (Version None)
Quarter: 2004Q2

REPORT INFORMATION
  Report Type: 
  Country: None (occurrence: None)
  Receive Date: 20040602
  Receipt Date: 20040512
  Transmission Date: 20050107
  Serious: Yes (Hospitalization)
  Sender: FDA-Public Use
  Company Number: FR-JNJFOC-20040303065

PATIENT
  Age: 24 Year
  Sex: Male
  Weight: 72 kg

DRUGS (5)
  1. RISPERDAL [Suspect]
     Indication: SCHIZOPHRENIA, PARANOID TYPE
     Dosage: SEE IMAGE
     Route: 048
     Dates: end: 20040305
  2. RISPERDAL [Suspect]
     Indication: SCHIZOPHRENIA, PARANOID TYPE
     Dosage: SEE IMAGE
     Route: 048
     Dates: start: 20040202
  3. TERCIAN (CYAMEMAZINE) [Suspect]
     Indication: DRUG USE FOR UNKNOWN INDICATION
     Dosage: 2 MG, IN 1 DAY
     Dates: start: 20040128, end: 20040305
  4. LEPTICUR (TROPATEPINE HYDROCHLORIDE) [Suspect]
     Indication: DRUG USE FOR UNKNOWN INDICATION
     Dosage: 10 MG, IN 1 DAY
     Dates: start: 20040217, end: 20040305
  5. CLONAZEPAM [Concomitant]

REACTIONS (5)
  - ANGIONEUROTIC OEDEMA [None]
  - ASTHENIA [None]
  - DYSPNOEA [None]
  - HERPES SIMPLEX [None]
  - PYREXIA [None]
